FAERS Safety Report 20576180 (Version 1)
Quarter: 2022Q1

REPORT INFORMATION
  Report Type: Report from Study
  Country: AR (occurrence: AR)
  Receive Date: 20220310
  Receipt Date: 20220310
  Transmission Date: 20220423
  Serious: Yes (Hospitalization, Other)
  Sender: FDA-Public Use
  Company Number: AR-AMGEN-ARGSL2021089322

PATIENT
  Age: 77 Year
  Sex: Male

DRUGS (3)
  1. VECTIBIX [Suspect]
     Active Substance: PANITUMUMAB
     Indication: Colorectal cancer metastatic
     Dosage: UNK, Q2WK (14 DAYS)
     Route: 065
     Dates: start: 20201229, end: 2021
  2. VECTIBIX [Suspect]
     Active Substance: PANITUMUMAB
     Dosage: UNK, Q2WK (14 DAYS)
     Route: 065
     Dates: start: 2021, end: 20210716
  3. VECTIBIX [Suspect]
     Active Substance: PANITUMUMAB
     Dosage: UNK, Q2WK (14 DAYS)
     Route: 065
     Dates: start: 2021

REACTIONS (6)
  - White blood cell count decreased [Not Recovered/Not Resolved]
  - Colorectal cancer metastatic [Unknown]
  - Rash [Recovering/Resolving]
  - Dry skin [Not Recovered/Not Resolved]
  - Skin fissures [Not Recovered/Not Resolved]
  - Feeling abnormal [Unknown]

NARRATIVE: CASE EVENT DATE: 20210101
